FAERS Safety Report 7636499-7 (Version None)
Quarter: 2011Q3

REPORT INFORMATION
  Report Type: 
  Country: None (occurrence: None)
  Receive Date: 20110719
  Receipt Date: 20110705
  Transmission Date: 20111222
  Serious: Yes (Other)
  Sender: FDA-Public Use
  Company Number: 2011P1007558

PATIENT

DRUGS (7)
  1. PYRIMETHAMINE TAB [Suspect]
     Indication: CEREBRAL TOXOPLASMOSIS
     Dosage: 25 MG;QD
  2. LEUCOVORIN CALCIUM [Concomitant]
  3. COTRIM [Concomitant]
  4. SULFADIAZINE [Suspect]
     Dosage: 2 GM;QD
  5. EMTRICITABINE [Concomitant]
  6. TENOFOVIR DISOPROXIL FUMARATE [Concomitant]
  7. DARUNAVIR ETHANOLATE [Concomitant]

REACTIONS (6)
  - ASTHENIA [None]
  - INFECTION PARASITIC [None]
  - CEREBRAL TOXOPLASMOSIS [None]
  - APHASIA [None]
  - HEADACHE [None]
  - INFECTION REACTIVATION [None]
